FAERS Safety Report 20906106 (Version 1)
Quarter: 2022Q2

REPORT INFORMATION
  Report Type: Spontaneous
  Country: US (occurrence: US)
  Receive Date: 20220602
  Receipt Date: 20220602
  Transmission Date: 20220721
  Serious: No
  Sender: FDA-Public Use
  Company Number: US-COLLEGIUM PHARMACEUTICAL, INC.-2022CGM00066

PATIENT
  Sex: Male
  Weight: 113.83 kg

DRUGS (5)
  1. XTAMPZA ER [Suspect]
     Active Substance: OXYCODONE
     Indication: Pain
     Dosage: 9 MG, 2X/DAY (EVERY 12 HOURS)
     Route: 048
     Dates: start: 20211109
  2. XTAMPZA ER [Suspect]
     Active Substance: OXYCODONE
     Indication: Arthralgia
  3. OXY 10/325 [Concomitant]
     Dosage: 1 DOSAGE UNITS, EVERY 6 TO 8 HOURS AS NEEDED
     Dates: start: 20190923
  4. GABAPENTIN [Concomitant]
     Active Substance: GABAPENTIN
     Dosage: 1 DOSAGE UNITS, 1X/DAY
  5. ALPRAZOLAM [Concomitant]
     Active Substance: ALPRAZOLAM
     Dosage: #60 FOR 30 DAYS

REACTIONS (1)
  - Muscle spasms [Unknown]
